FAERS Safety Report 10314146 (Version 5)
Quarter: 2015Q1

REPORT INFORMATION
  Report Type: Report from Study
  Country: US (occurrence: US)
  Receive Date: 20140718
  Receipt Date: 20150213
  Transmission Date: 20150720
  Serious: Yes (Other)
  Sender: FDA-Public Use
  Company Number: US-SA-2014SA093469

PATIENT
  Age: 57 Year
  Sex: Female

DRUGS (3)
  1. AUBAGIO [Suspect]
     Active Substance: TERIFLUNOMIDE
     Indication: MULTIPLE SCLEROSIS
     Route: 048
     Dates: start: 20140530
  2. AUBAGIO [Suspect]
     Active Substance: TERIFLUNOMIDE
     Indication: MULTIPLE SCLEROSIS
     Route: 048
     Dates: start: 20140616
  3. AUBAGIO [Suspect]
     Active Substance: TERIFLUNOMIDE
     Indication: MULTIPLE SCLEROSIS
     Dosage: BREAKING 7MG PILLS IN HALF FOR FIRST 4 DAYS
     Route: 048
     Dates: end: 201406

REACTIONS (16)
  - Burning sensation [Unknown]
  - Malaise [Unknown]
  - Blood pressure decreased [Unknown]
  - Confusional state [Unknown]
  - Activities of daily living impaired [Unknown]
  - Pain in extremity [Unknown]
  - Nausea [Unknown]
  - Drug dose omission [Unknown]
  - Loss of consciousness [Unknown]
  - Micturition urgency [Unknown]
  - Wrong technique in drug usage process [Unknown]
  - Hyperhidrosis [Unknown]
  - Tremor [Unknown]
  - Pain [Unknown]
  - Speech disorder [Recovering/Resolving]
  - Alopecia [Unknown]
